FAERS Safety Report 12047348 (Version 1)
Quarter: 2016Q1

REPORT INFORMATION
  Report Type: Spontaneous
  Country: US (occurrence: US)
  Receive Date: 20160209
  Receipt Date: 20160209
  Transmission Date: 20160526
  Serious: No
  Sender: FDA-Public Use
  Company Number: US-009507513-1602USA002487

PATIENT
  Sex: Female

DRUGS (2)
  1. BELSOMRA [Suspect]
     Active Substance: SUVOREXANT
     Indication: INSOMNIA
     Dosage: 1 DF, UNK
     Route: 048
  2. BELSOMRA [Suspect]
     Active Substance: SUVOREXANT
     Dosage: 0.5 DF, 7.5 MG
     Route: 048

REACTIONS (4)
  - Drug prescribing error [Unknown]
  - Circumstance or information capable of leading to medication error [Unknown]
  - Hallucination [Unknown]
  - Somnolence [Unknown]
